FAERS Safety Report 5130135-X (Version None)
Quarter: 2006Q4

REPORT INFORMATION
  Report Type: 
  Country: None (occurrence: None)
  Receive Date: 20061013
  Receipt Date: 20060928
  Transmission Date: 20070319
  Serious: Yes (Other)
  Sender: FDA-Public Use
  Company Number: US200606003611

PATIENT
  Sex: Male
  Weight: 95.2 kg

DRUGS (6)
  1. ZYPREXA [Suspect]
     Dosage: SEE IMAGE
     Dates: end: 19981201
  2. ZYPREXA [Suspect]
     Dosage: SEE IMAGE
     Dates: end: 20031001
  3. LITHIUM CARBONATE [Concomitant]
  4. NEURONTIN [Concomitant]
  5. FLUOXETINE [Concomitant]
  6. NEFAZODONE HCL [Concomitant]

REACTIONS (6)
  - BLOOD CHOLESTEROL ABNORMAL [None]
  - BLOOD TRIGLYCERIDES INCREASED [None]
  - DIABETES MELLITUS [None]
  - HEPATITIS VIRAL [None]
  - METABOLIC DISORDER [None]
  - OBESITY [None]
